FAERS Safety Report 20735289 (Version 1)
Quarter: 2022Q2

REPORT INFORMATION
  Report Type: Spontaneous
  Country: US (occurrence: None)
  Receive Date: 20220420
  Receipt Date: 20220420
  Transmission Date: 20220721
  Serious: No
  Sender: FDA-Public Use
  Company Number: None

PATIENT
  Age: 14 Year
  Sex: Male

DRUGS (1)
  1. NORDITROPIN [Suspect]
     Active Substance: SOMATROPIN
     Dosage: FREQUENCY : AT BEDTIME;?
     Route: 058
     Dates: start: 202203

REACTIONS (4)
  - Wisdom teeth removal [None]
  - Headache [None]
  - Surgical procedure repeated [None]
  - Therapy interrupted [None]

NARRATIVE: CASE EVENT DATE: 20220325
